FAERS Safety Report 4937306-3 (Version None)
Quarter: 2006Q1

REPORT INFORMATION
  Report Type: 
  Country: None (occurrence: None)
  Receive Date: 20060309
  Receipt Date: 20060228
  Transmission Date: 20060701
  Serious: Yes (Other)
  Sender: FDA-Public Use
  Company Number: DE-JNJFOC-20060204908

PATIENT
  Sex: Male
  Weight: 75 kg

DRUGS (1)
  1. TOPAMAX [Suspect]
     Indication: EPILEPSY
     Dosage: HAD BEEN TAKING TOPIRAMATE FOR 2 YEARS BEFORE THE ONSET OF THE EVENT.
     Route: 048

REACTIONS (2)
  - PSYCHOTIC DISORDER [None]
  - SCHIZOPHRENIA, PARANOID TYPE [None]
